FAERS Safety Report 11776644 (Version 1)
Quarter: 2015Q4

REPORT INFORMATION
  Report Type: Spontaneous
  Country: JP (occurrence: JP)
  Receive Date: 20151125
  Receipt Date: 20151125
  Transmission Date: 20160304
  Serious: Yes (Death, Other)
  Sender: FDA-Public Use
  Company Number: JP-ROCHE-1666393

PATIENT
  Age: 79 Year
  Sex: Male
  Weight: 55 kg

DRUGS (9)
  1. CLOPIDOGREL SULFATE [Concomitant]
     Active Substance: CLOPIDOGREL BISULFATE
     Indication: ANGINA PECTORIS
     Dosage: AMOUNT OF 1 ONCE ADMINISTRATION: 75 (UNIT UNCERTAINTY)
     Route: 048
     Dates: end: 20150925
  2. ATORVASTATIN [Concomitant]
     Active Substance: ATORVASTATIN
     Dosage: AMOUNT OF 1 ONCE ADMINISTRATION: 10 (UNIT UNCERTAINTY)
     Route: 048
     Dates: end: 20150925
  3. XELODA [Suspect]
     Active Substance: CAPECITABINE
     Indication: COLON CANCER
     Dosage: 2 WEEKS ADMINISTRATION FOLLOWED BY 1 WEEK REST
     Route: 048
     Dates: start: 20150522, end: 20150925
  4. WARFARIN POTASSIUM [Suspect]
     Active Substance: WARFARIN POTASSIUM
     Indication: PRODUCT USED FOR UNKNOWN INDICATION
     Dosage: AMOUNT OF 1 ONCE ADMINISTRATION: 2 (UNIT UNCERTAINTY)
     Route: 048
     Dates: end: 20150925
  5. FUROSEMIDE. [Concomitant]
     Active Substance: FUROSEMIDE
     Indication: ANGINA PECTORIS
     Dosage: AMOUNT OF 1 ONCE ADMINISTRATION: 20 (UNIT UNCERTAINTY)
     Route: 048
     Dates: end: 20150925
  6. LANSOPRAZOLE. [Concomitant]
     Active Substance: LANSOPRAZOLE
     Dosage: AMOUNT OF 1 ONCE ADMINISTRATION: 10 (UNIT UNCERTAINTY)
     Route: 048
     Dates: end: 20150925
  7. HARNAL [Concomitant]
     Active Substance: TAMSULOSIN HYDROCHLORIDE
     Dosage: AMOUNT OF 1 ONCE ADMINISTRATION: 0.2 (UNIT UNCERTAINTY)
     Route: 048
     Dates: end: 20150925
  8. BAYASPIRIN [Concomitant]
     Active Substance: ASPIRIN
     Indication: ANGINA PECTORIS
     Dosage: AMOUNT OF 1 ONCE ADMINISTRATION: 100 (UNIT UNCERTAINTY)
     Route: 048
     Dates: end: 20150925
  9. SPIRONOLACTONE. [Concomitant]
     Active Substance: SPIRONOLACTONE
     Dosage: AMOUNT OF 1 ONCE ADMINISTRATION: 25 (UNIT UNCERTAINTY)
     Route: 048
     Dates: end: 20150925

REACTIONS (4)
  - Subdural haematoma [Fatal]
  - International normalised ratio increased [Unknown]
  - Contusion [Unknown]
  - Transient ischaemic attack [Unknown]

NARRATIVE: CASE EVENT DATE: 20150925
